FAERS Safety Report 18182543 (Version 1)
Quarter: 2020Q3

REPORT INFORMATION
  Report Type: Spontaneous
  Country: FR (occurrence: FR)
  Receive Date: 20200821
  Receipt Date: 20200821
  Transmission Date: 20201103
  Serious: Yes (Hospitalization, Other)
  Sender: FDA-Public Use
  Company Number: FR-GILEAD-2020-0491440

PATIENT
  Age: 52 Year
  Sex: Male
  Weight: 64 kg

DRUGS (10)
  1. LINEZOLIDE [Concomitant]
     Active Substance: LINEZOLID
     Route: 042
  2. OMEPRAZOLE. [Concomitant]
     Active Substance: OMEPRAZOLE
     Route: 042
  3. HEPARINE [HEPARIN] [Concomitant]
     Active Substance: HEPARIN SODIUM
     Route: 042
  4. INSULINE [INSULIN PORCINE] [Concomitant]
     Active Substance: INSULIN PORK\INSULIN PURIFIED PORK
     Route: 042
  5. YESCARTA [Suspect]
     Active Substance: AXICABTAGENE CILOLEUCEL
     Indication: B-CELL LYMPHOMA
     Dosage: 78% DE CELL CART DANS LA POCHE
     Route: 042
     Dates: start: 20200612, end: 20200612
  6. BACTRIM [Concomitant]
     Active Substance: SULFAMETHOXAZOLE\TRIMETHOPRIM
     Route: 048
  7. RIMIFON [Concomitant]
     Active Substance: ISONIAZID
     Route: 048
  8. ACICLOVIR [Concomitant]
     Active Substance: ACYCLOVIR
     Route: 042
  9. LEVOFLOXACINE [LEVOFLOXACIN] [Concomitant]
     Active Substance: LEVOFLOXACIN
     Route: 048
  10. NOXAFIL [Concomitant]
     Active Substance: POSACONAZOLE
     Route: 048

REACTIONS (2)
  - Cytokine release syndrome [Recovered/Resolved]
  - Immune effector cell-associated neurotoxicity syndrome [Recovered/Resolved]

NARRATIVE: CASE EVENT DATE: 20200613
